FAERS Safety Report 8135256-5 (Version None)
Quarter: 2012Q1

REPORT INFORMATION
  Report Type: 
  Country: None (occurrence: None)
  Receive Date: 20120214
  Receipt Date: 20120208
  Transmission Date: 20120608
  Serious: Yes (Hospitalization)
  Sender: FDA-Public Use
  Company Number: US-BAYER-2012-007057

PATIENT
  Age: 50 Year
  Sex: Male

DRUGS (4)
  1. ANTIHYPERTENSIVES [Concomitant]
  2. MAGNESIUM OXIDE [Concomitant]
  3. NEXAVAR [Suspect]
     Indication: HEPATIC NEOPLASM MALIGNANT
     Dosage: 400 MG, BID
     Dates: start: 20120119, end: 20120123
  4. NEXAVAR [Suspect]
     Dosage: 200 MG, BID
     Route: 048
     Dates: start: 20120125

REACTIONS (8)
  - HEPATIC ENZYME ABNORMAL [None]
  - NAUSEA [None]
  - HEPATIC PAIN [None]
  - THERAPEUTIC RESPONSE UNEXPECTED [None]
  - BLOOD TEST ABNORMAL [None]
  - DRY SKIN [None]
  - BLOOD PRESSURE INCREASED [None]
  - ORAL PAIN [None]
